FAERS Safety Report 6438758-2 (Version None)
Quarter: 2009Q4

REPORT INFORMATION
  Report Type: 
  Country: None (occurrence: None)
  Receive Date: 20091113
  Receipt Date: 20091104
  Transmission Date: 20100525
  Serious: Yes (Other)
  Sender: FDA-Public Use
  Company Number: US-JNJFOC-20091101803

PATIENT
  Age: 65 Year
  Sex: Female

DRUGS (1)
  1. TOPAMAX [Suspect]
     Indication: TREMOR
     Route: 048

REACTIONS (1)
  - BLINDNESS [None]
